FAERS Safety Report 17865841 (Version 1)
Quarter: 2020Q2

REPORT INFORMATION
  Report Type: Spontaneous
  Country: US (occurrence: US)
  Receive Date: 20200605
  Receipt Date: 20200605
  Transmission Date: 20200714
  Serious: No
  Sender: FDA-Public Use
  Company Number: US-PFIZER INC-2020216371

PATIENT
  Age: 50 Year
  Sex: Male

DRUGS (3)
  1. XANAX [Suspect]
     Active Substance: ALPRAZOLAM
     Indication: ANXIETY
  2. XANAX [Suspect]
     Active Substance: ALPRAZOLAM
     Indication: PANIC ATTACK
  3. XANAX [Suspect]
     Active Substance: ALPRAZOLAM
     Indication: SEIZURE
     Dosage: 2 MG, AS NEEDED
     Route: 048
     Dates: start: 1990

REACTIONS (4)
  - Suspected counterfeit product [Unknown]
  - Product taste abnormal [Unknown]
  - Presyncope [Recovered/Resolved]
  - Feelings of worthlessness [Recovered/Resolved]

NARRATIVE: CASE EVENT DATE: 202005
